FAERS Safety Report 7222729-2 (Version None)
Quarter: 2011Q1

REPORT INFORMATION
  Report Type: 
  Country: None (occurrence: None)
  Receive Date: 20110110
  Receipt Date: 20110110
  Transmission Date: 20110831
  Serious: No
  Sender: FDA-Public Use
  Company Number: None

PATIENT
  Age: 66 Year
  Sex: Male
  Weight: 78.0187 kg

DRUGS (2)
  1. ACTONEL [Suspect]
     Indication: OSTEOPOROSIS
     Dosage: 1 A MONTH PO
     Route: 048
     Dates: start: 20101201, end: 20101201
  2. ACTONEL [Suspect]
     Indication: OSTEOPOROSIS
     Dosage: 1 A MONTH PO
     Route: 048
     Dates: start: 20101101, end: 20101101

REACTIONS (4)
  - MYALGIA [None]
  - CONDITION AGGRAVATED [None]
  - HEADACHE [None]
  - MUSCULOSKELETAL STIFFNESS [None]
